FAERS Safety Report 10470848 (Version 2)
Quarter: 2015Q1

REPORT INFORMATION
  Report Type: Spontaneous
  Country: US (occurrence: US)
  Receive Date: 20140923
  Receipt Date: 20150128
  Transmission Date: 20150720
  Serious: No
  Sender: FDA-Public Use
  Company Number: US-PFIZER INC-2014260229

PATIENT
  Sex: Female

DRUGS (9)
  1. SERZONE [Suspect]
     Active Substance: NEFAZODONE HYDROCHLORIDE
     Dosage: UNK
  2. NUBAIN [Suspect]
     Active Substance: NALBUPHINE HYDROCHLORIDE
     Dosage: UNK
  3. WELLBUTRIN [Suspect]
     Active Substance: BUPROPION HYDROCHLORIDE
     Dosage: UNK
  4. PAXIL [Suspect]
     Active Substance: PAROXETINE HYDROCHLORIDE
     Dosage: UNK
  5. EFFEXOR XR [Suspect]
     Active Substance: VENLAFAXINE HYDROCHLORIDE
     Dosage: UNK
  6. SONATA [Suspect]
     Active Substance: ZALEPLON
     Dosage: UNK
  7. IODINE [Suspect]
     Active Substance: IODINE
     Indication: X-RAY
     Dosage: UNK
  8. TORADOL [Suspect]
     Active Substance: KETOROLAC TROMETHAMINE
     Dosage: UNK
  9. PROZAC [Suspect]
     Active Substance: FLUOXETINE HYDROCHLORIDE
     Dosage: UNK

REACTIONS (2)
  - Drug hypersensitivity [Recovered/Resolved]
  - Iodine allergy [Recovered/Resolved]
